FAERS Safety Report 12357714 (Version 2)
Quarter: 2016Q2

REPORT INFORMATION
  Report Type: Report from Study
  Country: FR (occurrence: FR)
  Receive Date: 20160512
  Receipt Date: 20160520
  Transmission Date: 20160815
  Serious: Yes (Death)
  Sender: FDA-Public Use
  Company Number: FR-ROCHE-1756312

PATIENT
  Sex: Female

DRUGS (6)
  1. ALPHAGAN P [Concomitant]
     Active Substance: BRIMONIDINE TARTRATE
     Route: 048
  2. DAFALGAN [Concomitant]
     Active Substance: ACETAMINOPHEN
     Route: 048
  3. TANGANIL [Concomitant]
     Active Substance: ACETYLLEUCINE
     Route: 048
  4. BLINDED OLAPARIB/PLACEBO [Suspect]
     Active Substance: OLAPARIB
     Indication: OVARIAN CANCER
     Dosage: DATE OF LAST ADMINSTRATION BEFORE SAE: 11/MAR/2016
     Route: 065
     Dates: start: 20160310
  5. LOVENOX [Concomitant]
     Active Substance: ENOXAPARIN SODIUM
     Route: 058
  6. BEVACIZUMAB [Suspect]
     Active Substance: BEVACIZUMAB
     Indication: OVARIAN CANCER
     Dosage: DOSE AT THE TIME OF THE SAE: 15MG/KG?DATE OF LAST ADMINSTRATION BEFORE SAE: 21/APR/2016
     Route: 065
     Dates: start: 20151126

REACTIONS (2)
  - Cardiovascular disorder [Fatal]
  - Pulmonary embolism [Fatal]
